FAERS Safety Report 22105590 (Version 1)
Quarter: 2023Q1

REPORT INFORMATION
  Report Type: Spontaneous
  Country: US (occurrence: US)
  Receive Date: 20230317
  Receipt Date: 20230317
  Transmission Date: 20230418
  Serious: Yes (Other)
  Sender: FDA-Public Use
  Company Number: US-STRIDES ARCOLAB LIMITED-2023SP003496

PATIENT
  Age: 7 Decade
  Sex: Female

DRUGS (5)
  1. PREDNISOLONE [Suspect]
     Active Substance: PREDNISOLONE
     Indication: Haemorrhagic occlusive retinal vasculitis
     Dosage: UNK
     Route: 065
  2. PREDNISOLONE ACETATE [Suspect]
     Active Substance: PREDNISOLONE ACETATE
     Indication: Haemorrhagic occlusive retinal vasculitis
     Dosage: UNK
     Route: 065
  3. BEVACIZUMAB [Suspect]
     Active Substance: BEVACIZUMAB
     Indication: Haemorrhagic occlusive retinal vasculitis
     Dosage: UNK
     Route: 065
  4. MOXIFLOXACIN;TRIAMCINOLONE [Concomitant]
     Indication: Product used for unknown indication
     Dosage: 0.1 MILLILITER, TRANSZONULAR DELIVERY (RIGHT EYE)
  5. MOXIFLOXACIN;TRIAMCINOLONE [Concomitant]
     Dosage: 0.1 MILLILITER, TRANSZONULAR DELIVERY (LEFT EYE)

REACTIONS (1)
  - Therapy partial responder [Unknown]
